FAERS Safety Report 9970053 (Version 1)
Quarter: 2014Q1

REPORT INFORMATION
  Report Type: Spontaneous
  Country: DE (occurrence: DE)
  Receive Date: 20140306
  Receipt Date: 20140306
  Transmission Date: 20141002
  Serious: Yes (Other)
  Sender: FDA-Public Use
  Company Number: DE-TEVA-464633GER

PATIENT
  Age: 46 Year
  Sex: Male
  Weight: 80 kg

DRUGS (1)
  1. IBUPROFEN [Suspect]
     Indication: POSTOPERATIVE ANALGESIA
     Dosage: 500MG
     Route: 048
     Dates: start: 20140217, end: 20140217

REACTIONS (1)
  - Pancreatitis [Recovered/Resolved]
